FAERS Safety Report 17545785 (Version 2)
Quarter: 2020Q3

REPORT INFORMATION
  Report Type: Spontaneous
  Country: GB (occurrence: GB)
  Receive Date: 20200316
  Receipt Date: 20200924
  Transmission Date: 20201102
  Serious: Yes (Disabling, Other)
  Sender: FDA-Public Use
  Company Number: GB-BRISTOL-MYERS SQUIBB COMPANY-BMS-2020-021337

PATIENT
  Age: 69 Year

DRUGS (2)
  1. CINNARIZINE [Concomitant]
     Active Substance: CINNARIZINE
     Indication: VERTIGO
     Dosage: 15 MILLIGRAM, (LONG?STANDING MEDICATION)
     Route: 048
  2. APIXABAN [Suspect]
     Active Substance: APIXABAN
     Indication: CEREBROVASCULAR ACCIDENT PROPHYLAXIS
     Dosage: 5 MILLIGRAM
     Route: 048

REACTIONS (3)
  - Depression [Recovered/Resolved]
  - Depressed mood [Recovered/Resolved]
  - Suicidal ideation [Recovered/Resolved]
